FAERS Safety Report 21825070 (Version 2)
Quarter: 2023Q1

REPORT INFORMATION
  Report Type: Spontaneous
  Country: ES (occurrence: ES)
  Receive Date: 20230105
  Receipt Date: 20230220
  Transmission Date: 20230417
  Serious: Yes (Hospitalization)
  Sender: FDA-Public Use
  Company Number: ES-TEVA-2022-ES-2842234

PATIENT
  Age: 54 Year
  Sex: Male

DRUGS (3)
  1. OLANZAPINE [Suspect]
     Active Substance: OLANZAPINE
     Indication: Anxiety
     Route: 065
  2. OLANZAPINE [Suspect]
     Active Substance: OLANZAPINE
     Indication: Agoraphobia
  3. OLANZAPINE [Suspect]
     Active Substance: OLANZAPINE
     Indication: Somatic symptom disorder

REACTIONS (2)
  - Histrionic personality disorder [Recovering/Resolving]
  - Obsessive-compulsive personality disorder [Recovering/Resolving]
